FAERS Safety Report 19210799 (Version 2)
Quarter: 2023Q4

REPORT INFORMATION
  Report Type: Spontaneous
  Country: US (occurrence: US)
  Receive Date: 20210504
  Receipt Date: 20231116
  Transmission Date: 20240109
  Serious: Yes (Death, Other)
  Sender: FDA-Public Use
  Company Number: US-SA-SAC00000000324068

PATIENT

DRUGS (1)
  1. ZANTAC [Suspect]
     Active Substance: RANITIDINE HYDROCHLORIDE
     Dosage: 150 MG

REACTIONS (7)
  - Neoplasm malignant [Unknown]
  - Death [Fatal]
  - Hospitalisation [Unknown]
  - Pain [Unknown]
  - Injury [Unknown]
  - Physical disability [Unknown]
  - Anhedonia [Unknown]
